FAERS Safety Report 9726605 (Version 1)
Quarter: 2013Q4

REPORT INFORMATION
  Report Type: Spontaneous
  Country: JP (occurrence: JP)
  Receive Date: 20131203
  Receipt Date: 20131203
  Transmission Date: 20140711
  Serious: Yes (Hospitalization)
  Sender: FDA-Public Use
  Company Number: JP-GLAXOSMITHKLINE-B0949243A

PATIENT
  Age: 78 Year
  Sex: Female

DRUGS (1)
  1. VOTRIENT 200MG [Suspect]
     Route: 048

REACTIONS (8)
  - Peritonitis [Unknown]
  - Hypophagia [Unknown]
  - Dehydration [Unknown]
  - Pain [Unknown]
  - Abdominal pain [Unknown]
  - Ascites [Unknown]
  - Nausea [Unknown]
  - Vomiting [Unknown]
